FAERS Safety Report 23838031 (Version 1)
Quarter: 2024Q2

REPORT INFORMATION
  Report Type: Spontaneous
  Country: CA (occurrence: CA)
  Receive Date: 20240509
  Receipt Date: 20240509
  Transmission Date: 20240716
  Serious: Yes (Other)
  Sender: FDA-Public Use
  Company Number: CA-B.Braun Medical Inc.-2156816

PATIENT
  Age: 66 Year
  Sex: Male

DRUGS (14)
  1. POTASSIUM CHLORIDE [Suspect]
     Active Substance: POTASSIUM CHLORIDE
  2. ASPIRIN [Suspect]
     Active Substance: ASPIRIN
  3. VALACYCLOVIR [Suspect]
     Active Substance: VALACYCLOVIR HYDROCHLORIDE
  4. ROSUVASTATIN [Suspect]
     Active Substance: ROSUVASTATIN
  5. PANTOPRAZOLE [Suspect]
     Active Substance: PANTOPRAZOLE
  6. OLANZAPINE [Suspect]
     Active Substance: OLANZAPINE
  7. METFORMIN [Suspect]
     Active Substance: METFORMIN HYDROCHLORIDE
  8. MAGNESIUM OXIDE [Suspect]
     Active Substance: MAGNESIUM OXIDE
  9. LIDOCAINE [Suspect]
     Active Substance: LIDOCAINE
  10. FLUCONAZOLE [Suspect]
     Active Substance: FLUCONAZOLE
  11. FILGRASTIM [Suspect]
     Active Substance: FILGRASTIM
  12. DIMENHYDRINATE [Suspect]
     Active Substance: DIMENHYDRINATE
  13. CIPROFLOXACIN [Suspect]
     Active Substance: CIPROFLOXACIN
  14. AMLODIPINE BESYLATE\TELMISARTAN [Suspect]
     Active Substance: AMLODIPINE BESYLATE\TELMISARTAN

REACTIONS (1)
  - Febrile neutropenia [Unknown]
